FAERS Safety Report 17839453 (Version 1)
Quarter: 2020Q2

REPORT INFORMATION
  Report Type: Spontaneous
  Country: US (occurrence: US)
  Receive Date: 20200529
  Receipt Date: 20200529
  Transmission Date: 20200714
  Serious: Yes (Hospitalization)
  Sender: FDA-Public Use
  Company Number: None

PATIENT
  Age: 45 Year
  Sex: Female
  Weight: 81.6 kg

DRUGS (1)
  1. ASPIRIN. [Suspect]
     Active Substance: ASPIRIN
     Dates: start: 20200514

REACTIONS (5)
  - Urinary incontinence [None]
  - Klebsiella infection [None]
  - Post procedural fever [None]
  - Hysterectomy [None]
  - Culture urine positive [None]

NARRATIVE: CASE EVENT DATE: 20200522
